FAERS Safety Report 13187190 (Version 4)
Quarter: 2017Q2

REPORT INFORMATION
  Report Type: Spontaneous
  Country: JP (occurrence: JP)
  Receive Date: 20170206
  Receipt Date: 20170417
  Transmission Date: 20170830
  Serious: Yes (Hospitalization)
  Sender: FDA-Public Use
  Company Number: JP-AMGEN-JPNSP2017018874

PATIENT
  Age: 67 Year
  Sex: Male
  Weight: 45 kg

DRUGS (3)
  1. RANMARK [Suspect]
     Active Substance: DENOSUMAB
     Indication: METASTASES TO BONE
     Dosage: 120 MG, Q4WK
     Route: 041
     Dates: start: 20150423, end: 20161102
  2. DOXORUBICIN [Concomitant]
     Active Substance: DOXORUBICIN
     Dosage: 31.5 MG, QD
     Route: 041
     Dates: start: 20160920, end: 20161208
  3. RANMARK [Suspect]
     Active Substance: DENOSUMAB
     Indication: BENIGN BONE NEOPLASM
     Dosage: 120 MG, UNK
     Route: 058
     Dates: start: 20170112, end: 20170112

REACTIONS (1)
  - Osteonecrosis of jaw [Recovered/Resolved]

NARRATIVE: CASE EVENT DATE: 20161108
